FAERS Safety Report 15572376 (Version 2)
Quarter: 2018Q4

REPORT INFORMATION
  Report Type: Spontaneous
  Country: US (occurrence: US)
  Receive Date: 20181031
  Receipt Date: 20181115
  Transmission Date: 20190205
  Serious: Yes (Hospitalization, Other)
  Sender: FDA-Public Use
  Company Number: US-GLAXOSMITHKLINE-US2018GSK195685

PATIENT
  Age: 66 Year
  Sex: Female

DRUGS (5)
  1. FLOLAN DILUENT PH 12 [Suspect]
     Active Substance: GLYCINE\MANNITOL\SODIUM CHLORIDE
     Indication: PULMONARY ARTERIAL HYPERTENSION
     Dosage: UNK
     Dates: start: 20161115
  2. FLOLAN [Suspect]
     Active Substance: EPOPROSTENOL SODIUM
     Indication: PULMONARY ARTERIAL HYPERTENSION
     Dosage: 39 NG/KG/MIN, CO
     Route: 042
     Dates: start: 20020904
  3. REVATIO [Concomitant]
     Active Substance: SILDENAFIL CITRATE
  4. OPSUMIT [Concomitant]
     Active Substance: MACITENTAN
  5. XARELTO [Concomitant]
     Active Substance: RIVAROXABAN

REACTIONS (1)
  - Syncope [Unknown]

NARRATIVE: CASE EVENT DATE: 20181022
